FAERS Safety Report 9348384 (Version 1)
Quarter: 2013Q2

REPORT INFORMATION
  Report Type: Spontaneous
  Country: IT (occurrence: IT)
  Receive Date: 20130614
  Receipt Date: 20130614
  Transmission Date: 20140414
  Serious: Yes (Hospitalization)
  Sender: FDA-Public Use
  Company Number: IT-BRISTOL-MYERS SQUIBB COMPANY-18986935

PATIENT
  Age: 82 Year
  Sex: Female

DRUGS (16)
  1. COUMADIN TABS 5 MG [Suspect]
     Indication: ATRIAL FIBRILLATION
     Route: 048
     Dates: start: 20130101, end: 20130501
  2. SINEMET [Concomitant]
     Dosage: 1DF: 100+25MG TABS
  3. CONGESCOR [Concomitant]
     Dosage: TABS
  4. LASIX [Concomitant]
     Dosage: TABS
  5. DEPAKIN [Concomitant]
     Dosage: TABS
  6. MOVICOL [Concomitant]
     Dosage: 1DF: 12.8 GR POWDER FOR ORAL SOLUTION
  7. ZYLORIC [Concomitant]
     Route: 048
  8. CACIT D3 [Concomitant]
     Dosage: 1DF: 1000MG/880IU SACHETS
  9. NEXIUM [Concomitant]
     Dosage: TABS
  10. ALDACTONE [Concomitant]
     Dosage: TABS
  11. BISOPROLOL [Concomitant]
     Dosage: 1DF: 2.5 UNITS NOS
  12. CITALOPRAM [Concomitant]
  13. PANTORC [Concomitant]
     Dosage: 1DF: 20 UNITS NOS
  14. TRIATEC [Concomitant]
     Dosage: 1DF: 23.5 UNITS NOS
  15. ATEM [Concomitant]
     Dosage: 1DF: 2 UNITS NOS
  16. BRONCOVALEAS [Concomitant]
     Dosage: 1DF: 2 UNITS NOS

REACTIONS (7)
  - Diverticulitis intestinal haemorrhagic [Recovered/Resolved]
  - Overdose [Unknown]
  - Haemorrhagic anaemia [Recovered/Resolved]
  - Cardiac failure [Recovered/Resolved]
  - Candida infection [Recovered/Resolved]
  - Pseudomonas infection [Recovered/Resolved]
  - Senile dementia [Recovered/Resolved]
